FAERS Safety Report 11162746 (Version 1)
Quarter: 2015Q2

REPORT INFORMATION
  Report Type: Spontaneous
  Country: FR (occurrence: None)
  Receive Date: 20150602
  Receipt Date: 20150602
  Transmission Date: 20150821
  Serious: Yes (Hospitalization)
  Sender: FDA-Public Use
  Company Number: FK201502465

PATIENT
  Age: 59 Year
  Sex: Female

DRUGS (3)
  1. CARBOPLATIN. [Suspect]
     Active Substance: CARBOPLATIN
     Indication: OVARIAN CANCER STAGE III
     Route: 042
     Dates: start: 20141212, end: 20141212
  2. PACLITAXEL. [Suspect]
     Active Substance: PACLITAXEL
     Indication: OVARIAN CANCER STAGE III
     Route: 042
     Dates: start: 20141212, end: 20141212
  3. AVASTIN [Suspect]
     Active Substance: BEVACIZUMAB
     Indication: OVARIAN CANCER STAGE III
     Route: 040
     Dates: start: 20141212, end: 20141212

REACTIONS (7)
  - Tachypnoea [None]
  - Generalised erythema [None]
  - Defaecation urgency [None]
  - Hyperhidrosis [None]
  - Anxiety [None]
  - Abdominal pain [None]
  - Flushing [None]

NARRATIVE: CASE EVENT DATE: 20141212
